FAERS Safety Report 11087299 (Version 1)
Quarter: 2015Q2

REPORT INFORMATION
  Report Type: Spontaneous
  Country: US (occurrence: US)
  Receive Date: 20150504
  Receipt Date: 20150504
  Transmission Date: 20150821
  Serious: No
  Sender: FDA-Public Use
  Company Number: US-BIOGENIDEC-2015BI054684

PATIENT
  Age: 56 Year
  Sex: Female

DRUGS (1)
  1. TECFIDERA [Suspect]
     Active Substance: DIMETHYL FUMARATE
     Indication: MULTIPLE SCLEROSIS
     Dates: start: 20150314

REACTIONS (10)
  - General symptom [Unknown]
  - Diarrhoea [Unknown]
  - Tremor [Unknown]
  - Musculoskeletal stiffness [Unknown]
  - Pruritus generalised [Unknown]
  - Vomiting [Unknown]
  - Hypertension [Unknown]
  - Dry mouth [Unknown]
  - Hot flush [Unknown]
  - Nausea [Unknown]

NARRATIVE: CASE EVENT DATE: 201503
